FAERS Safety Report 8525912-9 (Version None)
Quarter: 2012Q3

REPORT INFORMATION
  Report Type: 
  Country: None (occurrence: None)
  Receive Date: 20120720
  Receipt Date: 20120718
  Transmission Date: 20120928
  Serious: Yes (Death, Hospitalization, Other)
  Sender: FDA-Public Use
  Company Number: PHHY2012BR062207

PATIENT
  Sex: Female

DRUGS (14)
  1. CARVEDILOL [Concomitant]
     Indication: ARRHYTHMIA
     Dosage: 12.5 MG, BID
     Route: 048
  2. DIOVAN [Suspect]
     Dosage: 0.5 TABLET (160 MG) DAILY
     Dates: end: 20110101
  3. SPIRONOLACTONE [Concomitant]
     Indication: ARRHYTHMIA
     Dosage: 25 MG, BID
     Route: 048
  4. ASPIRIN [Concomitant]
     Indication: ARRHYTHMIA
     Dosage: 100 MG, BID
     Route: 048
  5. DIOVAN [Suspect]
     Dosage: 1 TABLET (80 MG) 2 OR 3 TIMES A WEEK
     Route: 048
     Dates: start: 20110101
  6. SPIRONOLACTONE [Concomitant]
     Indication: ANGINA PECTORIS
  7. DIOVAN [Suspect]
     Dosage: 0.5 TABLET (80 MG) DAILY
     Dates: start: 20120101
  8. AMIODARONE HYDROCHLORIDE [Concomitant]
     Indication: ANGINA PECTORIS
  9. ASPIRIN [Concomitant]
     Indication: ANGINA PECTORIS
  10. CARVEDILOL [Concomitant]
     Indication: ANGINA PECTORIS
  11. LASIX [Concomitant]
     Indication: ARRHYTHMIA
     Dosage: 40 MG, BID
     Route: 048
  12. LASIX [Concomitant]
     Indication: ANGINA PECTORIS
  13. DIOVAN [Suspect]
     Indication: HYPERTENSION
     Dosage: 1 TABLET (160 MG) DAILY
     Route: 048
     Dates: end: 20110101
  14. AMIODARONE HYDROCHLORIDE [Concomitant]
     Indication: ARRHYTHMIA
     Dosage: 200 MG, BID
     Route: 048

REACTIONS (16)
  - HEMIPLEGIA [None]
  - ANGINA PECTORIS [None]
  - HYPOTENSION [None]
  - BLOOD PRESSURE DECREASED [None]
  - CEREBROVASCULAR ACCIDENT [None]
  - LIMB DISCOMFORT [None]
  - CARDIAC DISORDER [None]
  - WRONG TECHNIQUE IN DRUG USAGE PROCESS [None]
  - SYNCOPE [None]
  - POOR PERIPHERAL CIRCULATION [None]
  - URINARY TRACT INFECTION [None]
  - PERIPHERAL COLDNESS [None]
  - DEVICE ELECTRICAL FINDING [None]
  - THROMBOSIS [None]
  - PAIN IN EXTREMITY [None]
  - ARRHYTHMIA [None]
